FAERS Safety Report 24112815 (Version 1)
Quarter: 2024Q3

REPORT INFORMATION
  Report Type: Report from Study
  Country: CR (occurrence: CR)
  Receive Date: 20240719
  Receipt Date: 20240719
  Transmission Date: 20241017
  Serious: Yes (Disabling)
  Sender: MYLAN
  Company Number: CR-MYLANLABS-2024M1066788

PATIENT
  Sex: Female

DRUGS (1)
  1. NORVASC [Suspect]
     Active Substance: AMLODIPINE BESYLATE
     Indication: Product used for unknown indication
     Dosage: UNK
     Route: 065

REACTIONS (2)
  - Cerebrovascular accident [Not Recovered/Not Resolved]
  - Paralysis [Not Recovered/Not Resolved]
